FAERS Safety Report 6155617-3 (Version None)
Quarter: 2009Q2

REPORT INFORMATION
  Report Type: 
  Country: None (occurrence: None)
  Receive Date: 20090415
  Receipt Date: 20090408
  Transmission Date: 20091009
  Serious: Yes (Hospitalization, Other)
  Sender: FDA-Public Use
  Company Number: US-JNJCH-2009009945

PATIENT
  Age: 47 Year

DRUGS (1)
  1. CHILDREN'S BENADRYL ALLERGY CHERRY LIQUID [Suspect]
     Indication: SUICIDE ATTEMPT
     Dosage: TEXT:DRANK THE WHOLE BOTTLE
     Route: 048
     Dates: start: 20090407, end: 20090407

REACTIONS (1)
  - SUICIDE ATTEMPT [None]
